FAERS Safety Report 6551099-8 (Version None)
Quarter: 2010Q1

REPORT INFORMATION
  Report Type: 
  Country: None (occurrence: None)
  Receive Date: 20100125
  Receipt Date: 20100111
  Transmission Date: 20100710
  Serious: Yes (Other)
  Sender: FDA-Public Use
  Company Number: US-B.I. PHARMACEUTICALS,INC./RIDGEFIELD-2010-BP-00878PF

PATIENT
  Sex: Female
  Weight: 68.04 kg

DRUGS (6)
  1. SPIRIVA [Suspect]
     Indication: CHRONIC OBSTRUCTIVE PULMONARY DISEASE
     Dosage: 18 MCG
     Route: 055
     Dates: start: 20091201
  2. DILANTIN [Suspect]
     Indication: CONVULSION
     Dosage: 300 MG
     Route: 048
     Dates: start: 19780101
  3. PROVENTIL-HFA [Concomitant]
     Indication: CHRONIC OBSTRUCTIVE PULMONARY DISEASE
  4. NEURONTIN [Concomitant]
     Indication: CONVULSION
     Route: 048
     Dates: start: 20000101
  5. PREVACID [Concomitant]
     Indication: GASTROOESOPHAGEAL REFLUX DISEASE
     Dosage: 70 MG
     Route: 048
     Dates: start: 19970101
  6. ZOCOR [Concomitant]
     Indication: BLOOD CHOLESTEROL INCREASED
     Dates: start: 20020101

REACTIONS (2)
  - CONVULSION [None]
  - DRUG INEFFECTIVE [None]
